FAERS Safety Report 4729381-6 (Version None)
Quarter: 2005Q3

REPORT INFORMATION
  Report Type: 
  Country: None (occurrence: None)
  Receive Date: 20050729
  Receipt Date: 20050721
  Transmission Date: 20060218
  Serious: Yes (Hospitalization)
  Sender: FDA-Public Use
  Company Number: PHEH2005US08103

PATIENT
  Age: 52 Year
  Sex: Female
  Weight: 113 kg

DRUGS (2)
  1. ZOMETA [Suspect]
     Indication: BREAST CANCER METASTATIC
     Dosage: 4MG Q28D
     Dates: start: 20020507, end: 20050520
  2. AROMATASE INHIBITOR [Suspect]

REACTIONS (2)
  - FEMUR FRACTURE [None]
  - OSTEONECROSIS [None]
